FAERS Safety Report 5824566-X (Version None)
Quarter: 2008Q3

REPORT INFORMATION
  Report Type: 
  Country: None (occurrence: None)
  Receive Date: 20080728
  Receipt Date: 20080718
  Transmission Date: 20090109
  Serious: Yes (Hospitalization)
  Sender: FDA-Public Use
  Company Number: JP-MERCK-0805USA06310

PATIENT
  Age: 67 Year
  Sex: Female

DRUGS (5)
  1. FOSAMAX [Suspect]
     Indication: OSTEOPOROSIS
     Route: 048
     Dates: start: 20080412, end: 20080523
  2. MOBIC [Concomitant]
     Indication: BACK PAIN
     Route: 048
     Dates: start: 20080516
  3. GLORIAMIN [Concomitant]
     Indication: BACK PAIN
     Route: 048
     Dates: start: 20080516
  4. ASPIRIN [Concomitant]
     Route: 048
     Dates: start: 20060501
  5. LIPITOR [Concomitant]
     Indication: HYPERLIPIDAEMIA
     Route: 048
     Dates: start: 20060501

REACTIONS (2)
  - GASTROINTESTINAL DISORDER [None]
  - HEPATIC FUNCTION ABNORMAL [None]
